FAERS Safety Report 19327026 (Version 5)
Quarter: 2022Q1

REPORT INFORMATION
  Report Type: Report from Study
  Country: US (occurrence: US)
  Receive Date: 20210528
  Receipt Date: 20220330
  Transmission Date: 20220424
  Serious: Yes (Other)
  Sender: FDA-Public Use
  Company Number: US-NOVARTISPH-NVSC2021US114559

PATIENT
  Age: 33 Year
  Sex: Female

DRUGS (4)
  1. KESIMPTA [Interacting]
     Active Substance: OFATUMUMAB
     Indication: Product used for unknown indication
     Dosage: UNK
     Route: 065
  2. KESIMPTA [Interacting]
     Active Substance: OFATUMUMAB
     Dosage: UNK
     Route: 065
  3. KESIMPTA [Interacting]
     Active Substance: OFATUMUMAB
     Dosage: UNK
     Route: 065
  4. KESIMPTA [Interacting]
     Active Substance: OFATUMUMAB
     Dosage: 20 MG, (PER 0.4ML)
     Route: 065

REACTIONS (13)
  - Multiple sclerosis relapse [Unknown]
  - Migraine [Unknown]
  - Drug interaction [Unknown]
  - Injection site haemorrhage [Unknown]
  - Injection site pain [Unknown]
  - Injection site bruising [Unknown]
  - Injection site extravasation [Unknown]
  - Device malfunction [Unknown]
  - Pyrexia [Unknown]
  - Chills [Unknown]
  - Accidental exposure to product [Unknown]
  - Incorrect dose administered [Unknown]
  - Therapeutic response shortened [Unknown]

NARRATIVE: CASE EVENT DATE: 20220322
